FAERS Safety Report 24325444 (Version 1)
Quarter: 2024Q3

REPORT INFORMATION
  Report Type: Spontaneous
  Country: US (occurrence: US)
  Receive Date: 20240917
  Receipt Date: 20240917
  Transmission Date: 20241017
  Serious: No
  Sender: AUROBINDO
  Company Number: US-AUROBINDO-AUR-APL-2024-010749

PATIENT
  Age: 82 Year
  Sex: Female
  Weight: 86.1 kg

DRUGS (2)
  1. GALANTAMINE [Suspect]
     Active Substance: GALANTAMINE
     Indication: Dementia Alzheimer^s type
     Dosage: 16 MILLIGRAM, ONCE A DAY  (16 MG FROM 02 WEEKS AGO)
     Route: 065
  2. ARICEPT [Concomitant]
     Active Substance: DONEPEZIL HYDROCHLORIDE
     Indication: Product used for unknown indication
     Dosage: UNK
     Route: 065

REACTIONS (1)
  - Diarrhoea [Unknown]
